FAERS Safety Report 5190060-5 (Version None)
Quarter: 2006Q4

REPORT INFORMATION
  Report Type: 
  Country: None (occurrence: None)
  Receive Date: 20061222
  Receipt Date: 20061023
  Transmission Date: 20070319
  Serious: Yes (Death)
  Sender: FDA-Public Use
  Company Number: DE-SOLVAY-00306003397

PATIENT
  Age: 770 Month
  Sex: Male
  Weight: 60 kg

DRUGS (3)
  1. DIETARY SUPPLEMENTS [Concomitant]
     Indication: ILL-DEFINED DISORDER
     Dosage: DAILY DOSE:  UNKNOWN
     Route: 065
  2. KREON 40000 [Suspect]
     Indication: ENZYME ABNORMALITY
     Dosage: DAILY DOSE:  UNKNOWN
     Route: 048
     Dates: start: 20060901, end: 20060101
  3. CHEMOTHERAPY [Concomitant]
     Indication: ILL-DEFINED DISORDER
     Dosage: DAILY DOSE:  UNKNOWN
     Route: 065

REACTIONS (2)
  - COUGH [None]
  - DYSPNOEA [None]
